FAERS Safety Report 13705723 (Version 3)
Quarter: 2020Q1

REPORT INFORMATION
  Report Type: Report from Study
  Country: FR (occurrence: FR)
  Receive Date: 20170630
  Receipt Date: 20200206
  Transmission Date: 20200409
  Serious: Yes (Hospitalization)
  Sender: FDA-Public Use
  Company Number: FR-BAYER-2017-082238

PATIENT
  Age: 54 Year
  Sex: Female
  Weight: 50 kg

DRUGS (14)
  1. REGORAFENIB. [Suspect]
     Active Substance: REGORAFENIB
     Indication: SARCOMA METASTATIC
     Dosage: UNK
     Route: 048
     Dates: start: 20170510, end: 20170511
  2. XANAX [Concomitant]
     Active Substance: ALPRAZOLAM
     Dosage: UNK
     Dates: start: 20160921
  3. REGORAFENIB. [Suspect]
     Active Substance: REGORAFENIB
     Indication: SARCOMA METASTATIC
     Dosage: 160 MG (40 MG TABLET)
     Route: 048
     Dates: end: 20170428
  4. FLAGYL [Concomitant]
     Active Substance: METRONIDAZOLE\METRONIDAZOLE HYDROCHLORIDE
     Dosage: UNK
     Dates: start: 20170427, end: 20170523
  5. REGORAFENIB. [Suspect]
     Active Substance: REGORAFENIB
     Indication: SARCOMA METASTATIC
     Dosage: 160 MG (40 MG TABLET)
     Route: 048
     Dates: start: 20160915, end: 20170419
  6. DIOSMINE [Concomitant]
     Active Substance: DIOSMIN
     Dosage: UNK
  7. DEPAKOTE [Concomitant]
     Active Substance: DIVALPROEX SODIUM
     Indication: DEPRESSION
     Dosage: 250 MG, QD
     Dates: start: 2016
  8. TRIATEC [Concomitant]
     Indication: HYPERTENSION
     Dosage: 7.5 MG, QD
     Dates: start: 20161012
  9. TRIATEC [RAMIPRIL] [Concomitant]
     Active Substance: RAMIPRIL
     Dosage: UNK
  10. ZYPREXA [Concomitant]
     Active Substance: OLANZAPINE
     Dosage: UNK
  11. LEVOTHYROX [Concomitant]
     Active Substance: LEVOTHYROXINE
     Indication: HYPOTHYROIDISM
     Dosage: 112.5 MG, QD
     Dates: start: 2006
  12. EFFEXOR [Concomitant]
     Active Substance: VENLAFAXINE HYDROCHLORIDE
     Indication: DEPRESSION
     Dosage: 75 MG, QD
     Dates: start: 2011
  13. ORBENINE [Concomitant]
     Active Substance: CLOXACILLIN SODIUM
     Dosage: UNK
  14. ROCEPHIN [Concomitant]
     Active Substance: CEFTRIAXONE SODIUM
     Dosage: UNK
     Dates: start: 20170427, end: 20170523

REACTIONS (5)
  - Dyspnoea at rest [Recovered/Resolved]
  - Pulmonary oedema [Recovered/Resolved]
  - Cholecystitis [Recovered/Resolved]
  - Tachycardia [Recovered/Resolved]
  - Cardiac failure [Recovered/Resolved]

NARRATIVE: CASE EVENT DATE: 20170427
